FAERS Safety Report 8234145-5 (Version None)
Quarter: 2012Q1

REPORT INFORMATION
  Report Type: 
  Country: None (occurrence: None)
  Receive Date: 20120326
  Receipt Date: 20120319
  Transmission Date: 20120608
  Serious: Yes (Life-Threatening, Hospitalization, Other)
  Sender: FDA-Public Use
  Company Number: US-BAYER-2011-072104

PATIENT
  Age: 26 Year
  Sex: Female
  Weight: 85.714 kg

DRUGS (10)
  1. ENALAPRIL MALEATE [Concomitant]
     Dosage: 2.5 MG, UNK
  2. PROCARDIA XL [Concomitant]
     Dosage: 60 MG, UNK
  3. FISH OIL [Concomitant]
     Route: 048
  4. YAZ [Suspect]
     Indication: CONTRACEPTION
     Dosage: UNK
     Route: 048
     Dates: start: 20070101
  5. METFORMIN HCL [Concomitant]
     Indication: DIABETES MELLITUS
     Dosage: UNK
     Route: 048
     Dates: start: 20000101
  6. FLUCONAZOLE [Concomitant]
     Dosage: 150 MG, UNK
     Route: 048
     Dates: start: 20071018
  7. GLUCOPHAGE [Concomitant]
     Indication: DIABETES MELLITUS
     Dosage: 500 MG, UNK
     Route: 048
  8. GAS RELIEF [Concomitant]
     Indication: FLATULENCE
     Route: 048
  9. VYTORIN [Concomitant]
  10. ASPIRIN [Concomitant]
     Dosage: 81 MG, UNK

REACTIONS (10)
  - ASTHENIA [None]
  - EMOTIONAL DISTRESS [None]
  - INJURY [None]
  - FATIGUE [None]
  - ANXIETY [None]
  - ANHEDONIA [None]
  - GALLBLADDER NON-FUNCTIONING [None]
  - CHOLECYSTITIS CHRONIC [None]
  - ORGAN FAILURE [None]
  - PAIN [None]
